FAERS Safety Report 8100915-7 (Version None)
Quarter: 2012Q1

REPORT INFORMATION
  Report Type: 
  Country: None (occurrence: None)
  Receive Date: 20120129
  Receipt Date: 20110912
  Transmission Date: 20120608
  Serious: No
  Sender: FDA-Public Use
  Company Number: US-ABBOTT-11P-163-0853207-00

PATIENT
  Sex: Male

DRUGS (4)
  1. HUMIRA [Suspect]
     Indication: PRODUCT USED FOR UNKNOWN INDICATION
  2. UNKNOWN PAIN MEDICATIONS [Concomitant]
     Indication: PAIN
  3. CHOCHICINE [Concomitant]
     Indication: PRODUCT USED FOR UNKNOWN INDICATION
  4. UNKNOWN MUSCLE RELAXER [Concomitant]
     Indication: MUSCLE RELAXANT THERAPY

REACTIONS (5)
  - THIRST [None]
  - FEELING ABNORMAL [None]
  - WEIGHT DECREASED [None]
  - PYREXIA [None]
  - DECREASED APPETITE [None]
